FAERS Safety Report 11199806 (Version 10)
Quarter: 2016Q1

REPORT INFORMATION
  Report Type: Report from Study
  Country: US (occurrence: US)
  Receive Date: 20150618
  Receipt Date: 20160112
  Transmission Date: 20160525
  Serious: Yes (Hospitalization, Other)
  Sender: FDA-Public Use
  Company Number: US-ALEXION PHARMACEUTICALS INC-A201502190

PATIENT
  Sex: Male

DRUGS (1)
  1. SOLIRIS [Suspect]
     Active Substance: ECULIZUMAB
     Indication: PAROXYSMAL NOCTURNAL HAEMOGLOBINURIA
     Dosage: UNK
     Route: 042

REACTIONS (10)
  - Fatigue [Recovering/Resolving]
  - Poor venous access [Unknown]
  - Cerebrovascular accident [Unknown]
  - Bacteraemia [Unknown]
  - Bacteraemia [Recovered/Resolved]
  - Haemoglobin decreased [Unknown]
  - Dysarthria [Unknown]
  - Pulmonary oedema [Unknown]
  - Myelodysplastic syndrome [Unknown]
  - Haemoglobin abnormal [Recovering/Resolving]

NARRATIVE: CASE EVENT DATE: 20150714
